FAERS Safety Report 9910119 (Version 1)
Quarter: 2014Q1

REPORT INFORMATION
  Report Type: Spontaneous
  Country: US (occurrence: US)
  Receive Date: 20140219
  Receipt Date: 20140219
  Transmission Date: 20141002
  Serious: No
  Sender: FDA-Public Use
  Company Number: US-PFIZER INC-2014043894

PATIENT
  Sex: Female

DRUGS (3)
  1. ALTACE [Suspect]
     Dosage: UNK
  2. HYDROCHLOROTHIAZIDE [Concomitant]
     Dosage: UNK
  3. VOLTAREN [Concomitant]
     Dosage: UNK

REACTIONS (6)
  - Eye swelling [Unknown]
  - Paraesthesia oral [Unknown]
  - Eyelid oedema [Unknown]
  - Lip swelling [Unknown]
  - Sneezing [Unknown]
  - Oropharyngeal discomfort [Unknown]
